FAERS Safety Report 23541472 (Version 1)
Quarter: 2024Q1

REPORT INFORMATION
  Report Type: Report from Study
  Country: US (occurrence: US)
  Receive Date: 20240219
  Receipt Date: 20240219
  Transmission Date: 20240410
  Serious: Yes (Other)
  Sender: FDA-Public Use
  Company Number: US-ABBVIE-5641812

PATIENT
  Sex: Male

DRUGS (1)
  1. RINVOQ [Suspect]
     Active Substance: UPADACITINIB
     Indication: Crohn^s disease
     Route: 048

REACTIONS (6)
  - Crohn^s disease [Unknown]
  - Suicidal ideation [Unknown]
  - Abdominal distension [Unknown]
  - Gastrointestinal oedema [Unknown]
  - Intestinal atony [Unknown]
  - Hypotonia [Unknown]
